FAERS Safety Report 23365862 (Version 1)
Quarter: 2024Q1

REPORT INFORMATION
  Report Type: Spontaneous
  Country: US (occurrence: None)
  Receive Date: 20240103
  Receipt Date: 20240103
  Transmission Date: 20240410
  Serious: Yes (unspecified)
  Sender: FDA-Public Use
  Company Number: None

PATIENT
  Age: 57 Year
  Sex: Male
  Weight: 97.98 kg

DRUGS (5)
  1. FLUOROMETHOLONE [Suspect]
     Active Substance: FLUOROMETHOLONE
     Indication: Dry eye
     Dosage: FREQUENCY : 4 TIMES A DAY;?
     Route: 047
     Dates: start: 20230425, end: 20230429
  2. AMLODIPINE [Concomitant]
  3. HYDROCHLOROTHIAZIDE\LOSARTAN [Concomitant]
     Active Substance: HYDROCHLOROTHIAZIDE\LOSARTAN
  4. METFORMIN [Concomitant]
     Active Substance: METFORMIN HYDROCHLORIDE
  5. L-Arigine [Concomitant]

REACTIONS (3)
  - Visual impairment [None]
  - Headache [None]
  - Eye pain [None]

NARRATIVE: CASE EVENT DATE: 20230426
